FAERS Safety Report 6567573-4 (Version None)
Quarter: 2010Q1

REPORT INFORMATION
  Report Type: 
  Country: None (occurrence: None)
  Receive Date: 20100202
  Receipt Date: 20100122
  Transmission Date: 20100710
  Serious: Yes (Life-Threatening)
  Sender: FDA-Public Use
  Company Number: JP-AMGEN-US381869

PATIENT
  Sex: Female
  Weight: 57 kg

DRUGS (10)
  1. ENBREL [Suspect]
     Indication: DRUG USE FOR UNKNOWN INDICATION
     Route: 058
     Dates: start: 20081028, end: 20081031
  2. NORVASC [Concomitant]
     Indication: HYPERTENSION
     Dates: start: 20081022
  3. LENDORMIN [Concomitant]
  4. GASTER [Concomitant]
     Route: 048
     Dates: start: 20081022
  5. FOSAMAX [Concomitant]
     Route: 048
     Dates: start: 20081022
  6. BAKTAR [Concomitant]
     Route: 048
     Dates: start: 20081022
  7. PREDONINE [Concomitant]
     Indication: STILL'S DISEASE ADULT ONSET
     Route: 048
     Dates: start: 20081022
  8. PREDONINE [Concomitant]
     Route: 048
     Dates: end: 20081028
  9. PREDONINE [Concomitant]
     Route: 048
     Dates: start: 20081028
  10. LOCHOL [Concomitant]
     Indication: HYPERLIPIDAEMIA
     Route: 048
     Dates: start: 20081022

REACTIONS (4)
  - CONDITION AGGRAVATED [None]
  - HISTIOCYTOSIS HAEMATOPHAGIC [None]
  - SHOCK [None]
  - STILL'S DISEASE ADULT ONSET [None]
